FAERS Safety Report 19407584 (Version 1)
Quarter: 2021Q2

REPORT INFORMATION
  Report Type: Spontaneous
  Country: FR (occurrence: FR)
  Receive Date: 20210612
  Receipt Date: 20210612
  Transmission Date: 20210717
  Serious: Yes (Other)
  Sender: FDA-Public Use
  Company Number: FR-TEVA-2021-FR-1921414

PATIENT
  Age: 80 Year
  Sex: Male

DRUGS (1)
  1. SOTALOL TEVA [Suspect]
     Active Substance: SOTALOL HYDROCHLORIDE
     Indication: HEART RATE

REACTIONS (2)
  - Heart rate decreased [Not Recovered/Not Resolved]
  - Vertigo [Not Recovered/Not Resolved]

NARRATIVE: CASE EVENT DATE: 20210526
